FAERS Safety Report 18791718 (Version 2)
Quarter: 2021Q1

REPORT INFORMATION
  Report Type: Spontaneous
  Country: US (occurrence: US)
  Receive Date: 20210127
  Receipt Date: 20210316
  Transmission Date: 20210419
  Serious: No
  Sender: FDA-Public Use
  Company Number: US-ALEOR DERMACEUTICALS LTD-2021SCAL000021

PATIENT

DRUGS (3)
  1. CLOBETASOL PROPIONATE. [Suspect]
     Active Substance: CLOBETASOL PROPIONATE
     Indication: PRURITUS
     Dosage: 0.05 %, OD
     Route: 061
  2. DIBUCAINE HCL [Concomitant]
     Indication: ANALGESIC THERAPY
  3. DIBUCAINE HCL [Concomitant]
     Indication: HAEMORRHOIDS
     Dosage: 1 %, OD FOR TWO WEEKS
     Route: 061
     Dates: start: 20201109, end: 20201123

REACTIONS (2)
  - Product physical consistency issue [Unknown]
  - Rash [Recovered/Resolved]

NARRATIVE: CASE EVENT DATE: 20201123
